FAERS Safety Report 7849401 (Version 5)
Quarter: 2013Q2

REPORT INFORMATION
  Report Type: Report from Study
  Country: CA (occurrence: CA)
  Receive Date: 20110310
  Receipt Date: 20130507
  Transmission Date: 20140414
  Serious: Yes (Other)
  Sender: FDA-Public Use
  Company Number: PHHY2011CA16134

PATIENT
  Sex: Female

DRUGS (5)
  1. ACLASTA [Suspect]
     Indication: OSTEOPOROSIS
     Dosage: UNK UKN, UNK
     Route: 042
     Dates: start: 20090219
  2. ACLASTA [Suspect]
     Dosage: UNK UKN, UNK
     Route: 042
     Dates: start: 20100222
  3. ACLASTA [Suspect]
     Dosage: UNK UKN, UNK
     Route: 042
     Dates: start: 20120524
  4. ACLASTA [Suspect]
     Dosage: 5 MG/100ML, UNK
     Route: 042
  5. PREDNISONE [Concomitant]
     Dosage: UNK UKN, UNK

REACTIONS (8)
  - Rib fracture [Unknown]
  - Spinal compression fracture [Unknown]
  - Gait disturbance [Unknown]
  - Bone disorder [Unknown]
  - Confusional state [Unknown]
  - Memory impairment [Unknown]
  - Bone pain [Unknown]
  - Drug ineffective [Unknown]
